FAERS Safety Report 4339141-6 (Version None)
Quarter: 2004Q2

REPORT INFORMATION
  Report Type: 
  Country: None (occurrence: None)
  Receive Date: 20040413
  Receipt Date: 20040413
  Transmission Date: 20050107
  Serious: Yes (Death)
  Sender: FDA-Public Use
  Company Number: None

PATIENT
  Sex: Female
  Weight: 83.0083 kg

DRUGS (16)
  1. IRINOTECAN [Suspect]
     Indication: OESOPHAGEAL CARCINOMA
     Dosage: 90MG ON 1/26, 2/3, 2/9 80MG ON 3/15
     Dates: start: 20040126
  2. IRINOTECAN [Suspect]
     Indication: OESOPHAGEAL CARCINOMA
     Dosage: 90MG ON 1/26, 2/3, 2/9 80MG ON 3/15
     Dates: start: 20040202
  3. IRINOTECAN [Suspect]
     Indication: OESOPHAGEAL CARCINOMA
     Dosage: 90MG ON 1/26, 2/3, 2/9 80MG ON 3/15
     Dates: start: 20040209
  4. IRINOTECAN [Suspect]
     Indication: OESOPHAGEAL CARCINOMA
     Dosage: 90MG ON 1/26, 2/3, 2/9 80MG ON 3/15
     Dates: start: 20040315
  5. TAXOTERE [Suspect]
     Dosage: 64MG ON 1/26, 2/2, 2/9 46MG ON 2/23, 3/1
     Dates: start: 20040126
  6. TAXOTERE [Suspect]
     Dosage: 64MG ON 1/26, 2/2, 2/9 46MG ON 2/23, 3/1
     Dates: start: 20040202
  7. TAXOTERE [Suspect]
     Dosage: 64MG ON 1/26, 2/2, 2/9 46MG ON 2/23, 3/1
     Dates: start: 20040209
  8. TAXOTERE [Suspect]
     Dosage: 64MG ON 1/26, 2/2, 2/9 46MG ON 2/23, 3/1
     Dates: start: 20040223
  9. TAXOTERE [Suspect]
     Dosage: 64MG ON 1/26, 2/2, 2/9 46MG ON 2/23, 3/1
     Dates: start: 20040301
  10. NEXIUM [Concomitant]
  11. PREMARIN [Concomitant]
  12. LASIX [Concomitant]
  13. ZESTRIL [Concomitant]
  14. SYNTHROID [Concomitant]
  15. PRAVACHOL [Concomitant]
  16. KCL TAB [Concomitant]

REACTIONS (2)
  - CARDIO-RESPIRATORY ARREST [None]
  - DYSPNOEA [None]
